FAERS Safety Report 5106336-3 (Version None)
Quarter: 2006Q3

REPORT INFORMATION
  Report Type: 
  Country: None (occurrence: None)
  Receive Date: 20060918
  Receipt Date: 20060726
  Transmission Date: 20061208
  Serious: Yes (Death)
  Sender: FDA-Public Use
  Company Number: US-BRISTOL-MYERS SQUIBB COMPANY-13457395

PATIENT
  Age: 61 Year
  Sex: Female

DRUGS (1)
  1. MEGACE [Suspect]
     Indication: INCREASED APPETITE
     Route: 048

REACTIONS (1)
  - LUNG NEOPLASM MALIGNANT [None]
